FAERS Safety Report 22013410 (Version 2)
Quarter: 2023Q1

REPORT INFORMATION
  Report Type: Report from Study
  Country: CA (occurrence: CA)
  Receive Date: 20230220
  Receipt Date: 20230222
  Transmission Date: 20230418
  Serious: Yes (Hospitalization, Other)
  Sender: FDA-Public Use
  Company Number: CA-ABBVIE-4308566

PATIENT
  Age: 39 Year
  Sex: Female

DRUGS (4)
  1. HUMIRA [Suspect]
     Active Substance: ADALIMUMAB
     Indication: Crohn^s disease
     Route: 058
     Dates: start: 20210111
  2. CIPRO [Concomitant]
     Active Substance: CIPROFLOXACIN HYDROCHLORIDE
     Indication: Product used for unknown indication
  3. FLAGYL [Concomitant]
     Active Substance: METRONIDAZOLE\METRONIDAZOLE HYDROCHLORIDE
     Indication: Product used for unknown indication
  4. METHYLPREDNISOLONE [Concomitant]
     Active Substance: METHYLPREDNISOLONE
     Indication: Product used for unknown indication

REACTIONS (16)
  - Crohn^s disease [Unknown]
  - Abdominal pain lower [Unknown]
  - Adnexa uteri mass [Unknown]
  - Abdominal distension [Unknown]
  - Malaise [Unknown]
  - Stress [Unknown]
  - C-reactive protein increased [Unknown]
  - Platelet count increased [Unknown]
  - Pelvic inflammatory disease [Unknown]
  - Gastrointestinal wall thickening [Unknown]
  - Pelvic adhesions [Unknown]
  - Enterocutaneous fistula [Unknown]
  - Unevaluable event [Unknown]
  - Small intestinal perforation [Unknown]
  - Fixed bowel loop [Unknown]
  - Cystitis [Unknown]

NARRATIVE: CASE EVENT DATE: 20220901
